FAERS Safety Report 5494086-3 (Version None)
Quarter: 2007Q4

REPORT INFORMATION
  Report Type: 
  Country: None (occurrence: None)
  Receive Date: 20071023
  Receipt Date: 20071011
  Transmission Date: 20080405
  Serious: Yes (Hospitalization)
  Sender: FDA-Public Use
  Company Number: FR-PFIZER INC-2007087248

PATIENT
  Age: 52 Year
  Sex: Male

DRUGS (6)
  1. ALDACTONE [Suspect]
     Indication: NEPHROTIC SYNDROME
     Route: 048
  2. THALIDOMIDE [Suspect]
     Indication: MULTIPLE MYELOMA
     Route: 048
  3. LASIX [Suspect]
     Indication: NEPHROTIC SYNDROME
     Route: 048
  4. TRIATEC [Suspect]
     Indication: NEPHROTIC SYNDROME
     Route: 048
  5. ALKERAN [Concomitant]
     Dosage: TEXT:4 DF-FREQ:DAILY
     Route: 048
  6. DEXAMETHASONE [Concomitant]
     Dosage: DAILY DOSE:40MG-FREQ:DAILY

REACTIONS (2)
  - PHLEBITIS [None]
  - PULMONARY EMBOLISM [None]
